FAERS Safety Report 14464702 (Version 1)
Quarter: 2018Q1

REPORT INFORMATION
  Report Type: Other
  Country: US (occurrence: US)
  Receive Date: 20180130
  Receipt Date: 20180130
  Transmission Date: 20180509
  Serious: No
  Sender: FDA-Public Use
  Company Number: US-ACORDA-ACO_135535_2017

PATIENT
  Age: 66 Year
  Sex: Female

DRUGS (2)
  1. AMPYRA [Suspect]
     Active Substance: DALFAMPRIDINE
     Dosage: UNK
  2. AMPYRA [Suspect]
     Active Substance: DALFAMPRIDINE
     Indication: MULTIPLE SCLEROSIS
     Dosage: 10 MG, BID
     Route: 048
     Dates: start: 20100709

REACTIONS (8)
  - Haematocrit decreased [Unknown]
  - Red blood cell sedimentation rate increased [Unknown]
  - Haemoglobin decreased [Unknown]
  - Aspartate aminotransferase increased [Unknown]
  - Mean cell volume decreased [Unknown]
  - Blood alkaline phosphatase increased [Unknown]
  - C-reactive protein increased [Unknown]
  - Red cell distribution width increased [Unknown]

NARRATIVE: CASE EVENT DATE: 20170220
